FAERS Safety Report 8359063-3 (Version None)
Quarter: 2012Q2

REPORT INFORMATION
  Report Type: 
  Country: None (occurrence: None)
  Receive Date: 20120515
  Receipt Date: 20120508
  Transmission Date: 20120825
  Serious: No
  Sender: FDA-Public Use
  Company Number: US-BIOGENIDEC-2012BI016445

PATIENT
  Age: 57 Year
  Sex: Female

DRUGS (4)
  1. TYSABRI [Suspect]
     Indication: MULTIPLE SCLEROSIS
     Route: 042
     Dates: start: 20080509, end: 20100205
  2. TYSABRI [Suspect]
     Route: 042
     Dates: start: 20120209
  3. AVONEX [Concomitant]
     Route: 030
     Dates: start: 20100604
  4. AVONEX [Concomitant]
     Indication: MULTIPLE SCLEROSIS
     Route: 030
     Dates: start: 19980505, end: 20080328

REACTIONS (2)
  - EYE SWELLING [None]
  - SENSATION OF HEAVINESS [None]
